FAERS Safety Report 7737661-5 (Version None)
Quarter: 2011Q3

REPORT INFORMATION
  Report Type: 
  Country: None (occurrence: None)
  Receive Date: 20110908
  Receipt Date: 20110827
  Transmission Date: 20111222
  Serious: No
  Sender: FDA-Public Use
  Company Number: US-B.I. PHARMACEUTICALS,INC./RIDGEFIELD-2011-BP-20943BP

PATIENT
  Age: 73 Year
  Sex: Female

DRUGS (6)
  1. DYAZIDE [Concomitant]
     Indication: HYPERTENSION
     Route: 048
  2. LORAZEPAM [Concomitant]
     Indication: SLEEP DISORDER
     Route: 048
  3. LISINOPRIL [Concomitant]
     Indication: HYPERTENSION
     Dosage: 40 MG
     Route: 048
  4. SPIRIVA [Suspect]
     Indication: CHRONIC OBSTRUCTIVE PULMONARY DISEASE
     Dosage: 18 MCG
     Route: 055
     Dates: start: 20110815
  5. AMLODIPINE [Concomitant]
     Indication: HYPERTENSION
     Dosage: 5 MG
     Route: 048
  6. VICODIN [Concomitant]
     Indication: PAIN
     Route: 048

REACTIONS (2)
  - PRODUCTIVE COUGH [None]
  - LARYNGITIS [None]
